FAERS Safety Report 22135569 (Version 3)
Quarter: 2023Q4

REPORT INFORMATION
  Report Type: Spontaneous
  Country: US (occurrence: None)
  Receive Date: 20230324
  Receipt Date: 20231113
  Transmission Date: 20240110
  Serious: Yes (Hospitalization, Other)
  Sender: FDA-Public Use
  Company Number: US-ROCHE-3315754

PATIENT
  Age: 64 Year
  Sex: Female

DRUGS (28)
  1. PEGASYS [Suspect]
     Active Substance: PEGINTERFERON ALFA-2A
     Indication: Polycythaemia
     Route: 058
     Dates: start: 201908, end: 201908
  2. PEGASYS [Suspect]
     Active Substance: PEGINTERFERON ALFA-2A
     Indication: Neoplasm malignant
     Route: 058
     Dates: end: 202004
  3. PEGASYS [Suspect]
     Active Substance: PEGINTERFERON ALFA-2A
     Route: 058
     Dates: start: 202006, end: 2023
  4. JAKAFI [Suspect]
     Active Substance: RUXOLITINIB
     Indication: Polycythaemia
     Route: 065
     Dates: start: 201908, end: 202002
  5. JAKAFI [Suspect]
     Active Substance: RUXOLITINIB
     Indication: Neoplasm malignant
     Route: 065
     Dates: start: 202205, end: 202208
  6. JAKAFI [Suspect]
     Active Substance: RUXOLITINIB
     Route: 065
     Dates: start: 2023
  7. HYDROXYUREA [Suspect]
     Active Substance: HYDROXYUREA
     Indication: Product used for unknown indication
     Route: 065
     Dates: start: 2020, end: 2021
  8. HYDROXYUREA [Suspect]
     Active Substance: HYDROXYUREA
     Route: 065
  9. ALLOPURINOL [Concomitant]
     Active Substance: ALLOPURINOL
  10. ATORVASTATIN [Concomitant]
     Active Substance: ATORVASTATIN
  11. CARVEDILOL [Concomitant]
     Active Substance: CARVEDILOL
  12. IRBESARTAN [Concomitant]
     Active Substance: IRBESARTAN
  13. LEVOTHYROXINE [Concomitant]
     Active Substance: LEVOTHYROXINE
  14. PANTOPRAZOLE [Concomitant]
     Active Substance: PANTOPRAZOLE
  15. SERTRALINE [Concomitant]
     Active Substance: SERTRALINE HYDROCHLORIDE
  16. TAMSULOSIN [Concomitant]
     Active Substance: TAMSULOSIN
  17. VALACYCLOVIR [Concomitant]
     Active Substance: VALACYCLOVIR HYDROCHLORIDE
  18. ALPRAZOLAM [Concomitant]
     Active Substance: ALPRAZOLAM
  19. CLONIDINE HYDROCHLORIDE [Concomitant]
     Active Substance: CLONIDINE HYDROCHLORIDE
  20. VITAMIN B1 [Concomitant]
     Active Substance: THIAMINE HYDROCHLORIDE
  21. VITAMIN B6 [Concomitant]
     Active Substance: PYRIDOXINE HYDROCHLORIDE
  22. VITAMIN C [Concomitant]
     Active Substance: ASCORBIC ACID
  23. VITAMIN D3 [Concomitant]
     Active Substance: CHOLECALCIFEROL
  24. COENZYME Q10 [Concomitant]
     Active Substance: DIETARY SUPPLEMENT\UBIDECARENONE
  25. MIRALAX [Concomitant]
     Active Substance: POLYETHYLENE GLYCOL 3350
  26. CLARITIN [Concomitant]
     Active Substance: LORATADINE
  27. XIIDRA [Concomitant]
     Active Substance: LIFITEGRAST
  28. ASPIRIN [Concomitant]
     Active Substance: ASPIRIN

REACTIONS (17)
  - Hepatitis [Unknown]
  - Angina pectoris [Recovered/Resolved]
  - Neuropathy peripheral [Unknown]
  - Joint swelling [Unknown]
  - Folliculitis [Unknown]
  - Platelet count increased [Unknown]
  - Blood test abnormal [Unknown]
  - Bone pain [Unknown]
  - Skin irritation [Unknown]
  - Burning sensation [Unknown]
  - Malaise [Not Recovered/Not Resolved]
  - Pruritus [Unknown]
  - Rash [Unknown]
  - Off label use [Unknown]
  - Aspartate aminotransferase increased [Not Recovered/Not Resolved]
  - Alanine aminotransferase increased [Not Recovered/Not Resolved]
  - Hepatic steatosis [Unknown]

NARRATIVE: CASE EVENT DATE: 20220401
